FAERS Safety Report 21153353 (Version 2)
Quarter: 2023Q1

REPORT INFORMATION
  Report Type: Spontaneous
  Country: US (occurrence: US)
  Receive Date: 20220731
  Receipt Date: 20230124
  Transmission Date: 20230417
  Serious: No
  Sender: FDA-Public Use
  Company Number: US-SA-SAC20220729000038

PATIENT
  Age: 34 Year
  Sex: Male

DRUGS (1)
  1. LEMTRADA [Suspect]
     Active Substance: ALEMTUZUMAB
     Dosage: UNK
     Route: 065

REACTIONS (8)
  - COVID-19 [Unknown]
  - Cough [Unknown]
  - Pain [Unknown]
  - Chills [Unknown]
  - Influenza [Unknown]
  - Nasopharyngitis [Unknown]
  - Sneezing [Unknown]
  - Nasal congestion [Unknown]
